FAERS Safety Report 21405177 (Version 2)
Quarter: 2022Q4

REPORT INFORMATION
  Report Type: Spontaneous
  Country: US (occurrence: US)
  Receive Date: 20221004
  Receipt Date: 20221007
  Transmission Date: 20230113
  Serious: No
  Sender: FDA-Public Use
  Company Number: US-NOVARTISTESTPH-NVSC2022US222652

PATIENT
  Sex: Female

DRUGS (1)
  1. PROMACTA [Suspect]
     Active Substance: ELTROMBOPAG OLAMINE
     Indication: Post lumbar puncture syndrome
     Dosage: 75 MG (EVERY MORNIGN)
     Route: 048
     Dates: start: 202206

REACTIONS (2)
  - Platelet count increased [Unknown]
  - Product use in unapproved indication [Unknown]
